FAERS Safety Report 19762601 (Version 1)
Quarter: 2021Q3

REPORT INFORMATION
  Report Type: Other
  Country: NO (occurrence: NO)
  Receive Date: 20210827
  Receipt Date: 20210827
  Transmission Date: 20211014
  Serious: Yes (Other)
  Sender: FDA-Public Use
  Company Number: NO-B.BRAUN MEDICAL INC.-2115763

PATIENT
  Age: 54 Year
  Sex: Female

DRUGS (3)
  1. IMMUNE GLOBULIN [Concomitant]
  2. HEPARIN SODIUM IN DEXTROSE [Suspect]
     Active Substance: HEPARIN SODIUM
     Indication: CEREBRAL VENOUS THROMBOSIS
     Route: 042
  3. METHYLPREDNISOLONE. [Concomitant]
     Active Substance: METHYLPREDNISOLONE

REACTIONS (1)
  - Intracranial pressure increased [None]
